FAERS Safety Report 11380596 (Version 1)
Quarter: 2015Q3

REPORT INFORMATION
  Report Type: Spontaneous
  Country: US (occurrence: US)
  Receive Date: 20150814
  Receipt Date: 20150814
  Transmission Date: 20151125
  Serious: Yes (Hospitalization)
  Sender: FDA-Public Use
  Company Number: US-JNJFOC-20150708630

PATIENT
  Sex: Female
  Weight: 68.04 kg

DRUGS (1)
  1. LEVAQUIN [Suspect]
     Active Substance: LEVOFLOXACIN
     Indication: PNEUMONIA
     Route: 065
     Dates: start: 2015

REACTIONS (5)
  - Overdose [Unknown]
  - Tendon disorder [Unknown]
  - Peripheral swelling [Unknown]
  - Rash erythematous [Unknown]
  - Weight increased [Unknown]

NARRATIVE: CASE EVENT DATE: 2015
